FAERS Safety Report 24658803 (Version 2)
Quarter: 2025Q4

REPORT INFORMATION
  Report Type: Report from Study
  Country: EU (occurrence: EU)
  Receive Date: 20241125
  Receipt Date: 20251027
  Transmission Date: 20260118
  Serious: Yes (Death, Hospitalization)
  Sender: MYLAN
  Company Number: EU-SA-SAC20240605000244

PATIENT
  Age: 49 Year
  Sex: Female

DRUGS (112)
  1. DEXAMETHASONE [Suspect]
     Active Substance: DEXAMETHASONE
     Indication: Plasma cell myeloma refractory
     Dosage: 40 MILLIGRAM, QW
     Dates: start: 20220307, end: 20220321
  2. DEXAMETHASONE [Suspect]
     Active Substance: DEXAMETHASONE
     Dosage: 40 MILLIGRAM, QW
     Route: 065
     Dates: start: 20220307, end: 20220321
  3. DEXAMETHASONE [Suspect]
     Active Substance: DEXAMETHASONE
     Dosage: 40 MILLIGRAM, QW
     Route: 065
     Dates: start: 20220307, end: 20220321
  4. DEXAMETHASONE [Suspect]
     Active Substance: DEXAMETHASONE
     Dosage: 40 MILLIGRAM, QW
     Dates: start: 20220307, end: 20220321
  5. ISATUXIMAB [Suspect]
     Active Substance: ISATUXIMAB
     Indication: Plasma cell myeloma refractory
     Dosage: 520 MILLIGRAM, QW
     Dates: start: 20220307, end: 20220321
  6. ISATUXIMAB [Suspect]
     Active Substance: ISATUXIMAB
     Dosage: 520 MILLIGRAM, QW
     Dates: start: 20220307, end: 20220321
  7. ISATUXIMAB [Suspect]
     Active Substance: ISATUXIMAB
     Dosage: 520 MILLIGRAM, QW
     Route: 042
     Dates: start: 20220307, end: 20220321
  8. ISATUXIMAB [Suspect]
     Active Substance: ISATUXIMAB
     Dosage: 520 MILLIGRAM, QW
     Route: 042
     Dates: start: 20220307, end: 20220321
  9. ISATUXIMAB [Suspect]
     Active Substance: ISATUXIMAB
     Dosage: 1040 MILLIGRAM, QW (520 MG, BIW)
     Dates: start: 20220523, end: 20220620
  10. ISATUXIMAB [Suspect]
     Active Substance: ISATUXIMAB
     Dosage: 1040 MILLIGRAM, QW (520 MG, BIW)
     Dates: start: 20220523, end: 20220620
  11. ISATUXIMAB [Suspect]
     Active Substance: ISATUXIMAB
     Dosage: 1040 MILLIGRAM, QW (520 MG, BIW)
     Route: 042
     Dates: start: 20220523, end: 20220620
  12. ISATUXIMAB [Suspect]
     Active Substance: ISATUXIMAB
     Dosage: 1040 MILLIGRAM, QW (520 MG, BIW)
     Route: 042
     Dates: start: 20220523, end: 20220620
  13. ISATUXIMAB [Suspect]
     Active Substance: ISATUXIMAB
     Dosage: 1040 MILLIGRAM, QW (520 MG, BIW)
     Dates: start: 20220621, end: 20220806
  14. ISATUXIMAB [Suspect]
     Active Substance: ISATUXIMAB
     Dosage: 1040 MILLIGRAM, QW (520 MG, BIW)
     Route: 042
     Dates: start: 20220621, end: 20220806
  15. ISATUXIMAB [Suspect]
     Active Substance: ISATUXIMAB
     Dosage: 1040 MILLIGRAM, QW (520 MG, BIW)
     Dates: start: 20220621, end: 20220806
  16. ISATUXIMAB [Suspect]
     Active Substance: ISATUXIMAB
     Dosage: 1040 MILLIGRAM, QW (520 MG, BIW)
     Route: 042
     Dates: start: 20220621, end: 20220806
  17. POMALIDOMIDE [Suspect]
     Active Substance: POMALIDOMIDE
     Indication: Plasma cell myeloma refractory
     Dosage: 4 MILLIGRAM, QD (4 MG DAILY DURING 21 DAYS, ONE WEEK BREAK)
     Dates: start: 20220307, end: 20220312
  18. POMALIDOMIDE [Suspect]
     Active Substance: POMALIDOMIDE
     Dosage: 4 MILLIGRAM, QD (4 MG DAILY DURING 21 DAYS, ONE WEEK BREAK)
     Dates: start: 20220307, end: 20220312
  19. POMALIDOMIDE [Suspect]
     Active Substance: POMALIDOMIDE
     Dosage: 4 MILLIGRAM, QD (4 MG DAILY DURING 21 DAYS, ONE WEEK BREAK)
     Route: 048
     Dates: start: 20220307, end: 20220312
  20. POMALIDOMIDE [Suspect]
     Active Substance: POMALIDOMIDE
     Dosage: 4 MILLIGRAM, QD (4 MG DAILY DURING 21 DAYS, ONE WEEK BREAK)
     Route: 048
     Dates: start: 20220307, end: 20220312
  21. POMALIDOMIDE [Suspect]
     Active Substance: POMALIDOMIDE
     Dosage: 2 MILLIGRAM, QD (2 MG DAILY DURING 21 DAYS, ONE WEEK BREAK)
     Dates: start: 20220523, end: 20220620
  22. POMALIDOMIDE [Suspect]
     Active Substance: POMALIDOMIDE
     Dosage: 2 MILLIGRAM, QD (2 MG DAILY DURING 21 DAYS, ONE WEEK BREAK)
     Dates: start: 20220523, end: 20220620
  23. POMALIDOMIDE [Suspect]
     Active Substance: POMALIDOMIDE
     Dosage: 2 MILLIGRAM, QD (2 MG DAILY DURING 21 DAYS, ONE WEEK BREAK)
     Route: 048
     Dates: start: 20220523, end: 20220620
  24. POMALIDOMIDE [Suspect]
     Active Substance: POMALIDOMIDE
     Dosage: 2 MILLIGRAM, QD (2 MG DAILY DURING 21 DAYS, ONE WEEK BREAK)
     Route: 048
     Dates: start: 20220523, end: 20220620
  25. POMALIDOMIDE [Suspect]
     Active Substance: POMALIDOMIDE
     Dosage: 2 MILLIGRAM, QD (2 MG DAILY DURING 21 DAYS, ONE WEEK BREAK)
     Dates: start: 20220621
  26. POMALIDOMIDE [Suspect]
     Active Substance: POMALIDOMIDE
     Dosage: 2 MILLIGRAM, QD (2 MG DAILY DURING 21 DAYS, ONE WEEK BREAK)
     Route: 048
     Dates: start: 20220621
  27. POMALIDOMIDE [Suspect]
     Active Substance: POMALIDOMIDE
     Dosage: 2 MILLIGRAM, QD (2 MG DAILY DURING 21 DAYS, ONE WEEK BREAK)
     Dates: start: 20220621
  28. POMALIDOMIDE [Suspect]
     Active Substance: POMALIDOMIDE
     Dosage: 2 MILLIGRAM, QD (2 MG DAILY DURING 21 DAYS, ONE WEEK BREAK)
     Route: 048
     Dates: start: 20220621
  29. VALACYCLOVIR HYDROCHLORIDE MONOHYDRATE [Concomitant]
     Active Substance: VALACYCLOVIR HYDROCHLORIDE MONOHYDRATE
     Indication: Prophylaxis
     Dosage: UNK
  30. VALACYCLOVIR HYDROCHLORIDE MONOHYDRATE [Concomitant]
     Active Substance: VALACYCLOVIR HYDROCHLORIDE MONOHYDRATE
     Dosage: UNK
  31. VALACYCLOVIR HYDROCHLORIDE MONOHYDRATE [Concomitant]
     Active Substance: VALACYCLOVIR HYDROCHLORIDE MONOHYDRATE
     Dosage: UNK
     Route: 065
  32. VALACYCLOVIR HYDROCHLORIDE MONOHYDRATE [Concomitant]
     Active Substance: VALACYCLOVIR HYDROCHLORIDE MONOHYDRATE
     Dosage: UNK
     Route: 065
  33. VALACYCLOVIR HYDROCHLORIDE MONOHYDRATE [Concomitant]
     Active Substance: VALACYCLOVIR HYDROCHLORIDE MONOHYDRATE
     Dosage: UNK
  34. VALACYCLOVIR HYDROCHLORIDE MONOHYDRATE [Concomitant]
     Active Substance: VALACYCLOVIR HYDROCHLORIDE MONOHYDRATE
     Dosage: UNK
  35. VALACYCLOVIR HYDROCHLORIDE MONOHYDRATE [Concomitant]
     Active Substance: VALACYCLOVIR HYDROCHLORIDE MONOHYDRATE
     Dosage: UNK
     Route: 065
  36. VALACYCLOVIR HYDROCHLORIDE MONOHYDRATE [Concomitant]
     Active Substance: VALACYCLOVIR HYDROCHLORIDE MONOHYDRATE
     Dosage: UNK
     Route: 065
  37. ATOVAQUONE [Concomitant]
     Active Substance: ATOVAQUONE
     Indication: Prophylaxis
     Dosage: UNK
  38. ATOVAQUONE [Concomitant]
     Active Substance: ATOVAQUONE
     Dosage: UNK
     Route: 065
  39. ATOVAQUONE [Concomitant]
     Active Substance: ATOVAQUONE
     Dosage: UNK
     Route: 065
  40. ATOVAQUONE [Concomitant]
     Active Substance: ATOVAQUONE
     Dosage: UNK
  41. LYSINE ACETYLSALICYLATE [Concomitant]
     Active Substance: ASPIRIN DL-LYSINE
     Indication: Prophylaxis
     Dosage: UNK
  42. LYSINE ACETYLSALICYLATE [Concomitant]
     Active Substance: ASPIRIN DL-LYSINE
     Dosage: UNK
     Route: 065
  43. LYSINE ACETYLSALICYLATE [Concomitant]
     Active Substance: ASPIRIN DL-LYSINE
     Dosage: UNK
     Route: 065
  44. LYSINE ACETYLSALICYLATE [Concomitant]
     Active Substance: ASPIRIN DL-LYSINE
     Dosage: UNK
  45. CLODRONIC ACID [Concomitant]
     Active Substance: CLODRONIC ACID
     Indication: Bone pain
     Dosage: UNK
  46. CLODRONIC ACID [Concomitant]
     Active Substance: CLODRONIC ACID
     Dosage: UNK
     Route: 065
  47. CLODRONIC ACID [Concomitant]
     Active Substance: CLODRONIC ACID
     Dosage: UNK
     Route: 065
  48. CLODRONIC ACID [Concomitant]
     Active Substance: CLODRONIC ACID
     Dosage: UNK
  49. CHOLECALCIFEROL [Concomitant]
     Active Substance: CHOLECALCIFEROL
     Indication: Bone pain
     Dosage: UNK
  50. CHOLECALCIFEROL [Concomitant]
     Active Substance: CHOLECALCIFEROL
     Dosage: UNK
     Route: 065
  51. CHOLECALCIFEROL [Concomitant]
     Active Substance: CHOLECALCIFEROL
     Dosage: UNK
     Route: 065
  52. CHOLECALCIFEROL [Concomitant]
     Active Substance: CHOLECALCIFEROL
     Dosage: UNK
  53. ALPRAZOLAM [Concomitant]
     Active Substance: ALPRAZOLAM
     Indication: Anxiety
     Dosage: UNK
  54. ALPRAZOLAM [Concomitant]
     Active Substance: ALPRAZOLAM
     Dosage: UNK
     Route: 065
  55. ALPRAZOLAM [Concomitant]
     Active Substance: ALPRAZOLAM
     Dosage: UNK
     Route: 065
  56. ALPRAZOLAM [Concomitant]
     Active Substance: ALPRAZOLAM
     Dosage: UNK
  57. PAROXETINE HYDROCHLORIDE [Concomitant]
     Active Substance: PAROXETINE HYDROCHLORIDE
     Indication: Anxiety
     Dosage: UNK
  58. PAROXETINE HYDROCHLORIDE [Concomitant]
     Active Substance: PAROXETINE HYDROCHLORIDE
     Dosage: UNK
     Route: 065
  59. PAROXETINE HYDROCHLORIDE [Concomitant]
     Active Substance: PAROXETINE HYDROCHLORIDE
     Dosage: UNK
     Route: 065
  60. PAROXETINE HYDROCHLORIDE [Concomitant]
     Active Substance: PAROXETINE HYDROCHLORIDE
     Dosage: UNK
  61. PANTOPRAZOLE [Concomitant]
     Active Substance: PANTOPRAZOLE
     Indication: Duodenal ulcer
     Dosage: UNK
  62. PANTOPRAZOLE [Concomitant]
     Active Substance: PANTOPRAZOLE
     Dosage: UNK
     Route: 065
  63. PANTOPRAZOLE [Concomitant]
     Active Substance: PANTOPRAZOLE
     Dosage: UNK
     Route: 065
  64. PANTOPRAZOLE [Concomitant]
     Active Substance: PANTOPRAZOLE
     Dosage: UNK
  65. SODIUM CARBONATE [Concomitant]
     Active Substance: SODIUM CARBONATE
     Dosage: UNK
  66. SODIUM CARBONATE [Concomitant]
     Active Substance: SODIUM CARBONATE
     Dosage: UNK
     Route: 065
  67. SODIUM CARBONATE [Concomitant]
     Active Substance: SODIUM CARBONATE
     Dosage: UNK
     Route: 065
  68. SODIUM CARBONATE [Concomitant]
     Active Substance: SODIUM CARBONATE
     Dosage: UNK
  69. Eludril perio [Concomitant]
     Dosage: UNK
  70. Eludril perio [Concomitant]
     Dosage: UNK
     Route: 065
  71. Eludril perio [Concomitant]
     Dosage: UNK
     Route: 065
  72. Eludril perio [Concomitant]
     Dosage: UNK
  73. NICARDIPINE HYDROCHLORIDE [Concomitant]
     Active Substance: NICARDIPINE HYDROCHLORIDE
     Dosage: UNK
  74. NICARDIPINE HYDROCHLORIDE [Concomitant]
     Active Substance: NICARDIPINE HYDROCHLORIDE
     Dosage: UNK
     Route: 065
  75. NICARDIPINE HYDROCHLORIDE [Concomitant]
     Active Substance: NICARDIPINE HYDROCHLORIDE
     Dosage: UNK
     Route: 065
  76. NICARDIPINE HYDROCHLORIDE [Concomitant]
     Active Substance: NICARDIPINE HYDROCHLORIDE
     Dosage: UNK
  77. ERYTHROPOIETIN [Concomitant]
     Active Substance: ERYTHROPOIETIN
     Indication: Anaemia prophylaxis
     Dosage: UNK
  78. ERYTHROPOIETIN [Concomitant]
     Active Substance: ERYTHROPOIETIN
     Dosage: UNK
     Route: 065
  79. ERYTHROPOIETIN [Concomitant]
     Active Substance: ERYTHROPOIETIN
     Dosage: UNK
     Route: 065
  80. ERYTHROPOIETIN [Concomitant]
     Active Substance: ERYTHROPOIETIN
     Dosage: UNK
  81. MELATONIN [Concomitant]
     Active Substance: MELATONIN
     Indication: Anxiety
     Dosage: UNK
  82. MELATONIN [Concomitant]
     Active Substance: MELATONIN
     Dosage: UNK
     Route: 065
  83. MELATONIN [Concomitant]
     Active Substance: MELATONIN
     Dosage: UNK
     Route: 065
  84. MELATONIN [Concomitant]
     Active Substance: MELATONIN
     Dosage: UNK
  85. BECLOMETHASONE DIPROPIONATE [Concomitant]
     Active Substance: BECLOMETHASONE DIPROPIONATE
     Dosage: UNK
  86. BECLOMETHASONE DIPROPIONATE [Concomitant]
     Active Substance: BECLOMETHASONE DIPROPIONATE
     Dosage: UNK
     Route: 065
  87. BECLOMETHASONE DIPROPIONATE [Concomitant]
     Active Substance: BECLOMETHASONE DIPROPIONATE
     Dosage: UNK
     Route: 065
  88. BECLOMETHASONE DIPROPIONATE [Concomitant]
     Active Substance: BECLOMETHASONE DIPROPIONATE
     Dosage: UNK
  89. ALBUTEROL SULFATE [Concomitant]
     Active Substance: ALBUTEROL SULFATE
     Dosage: UNK
  90. ALBUTEROL SULFATE [Concomitant]
     Active Substance: ALBUTEROL SULFATE
     Dosage: UNK
     Route: 065
  91. ALBUTEROL SULFATE [Concomitant]
     Active Substance: ALBUTEROL SULFATE
     Dosage: UNK
     Route: 065
  92. ALBUTEROL SULFATE [Concomitant]
     Active Substance: ALBUTEROL SULFATE
     Dosage: UNK
  93. MORPHINE [Concomitant]
     Active Substance: MORPHINE
     Dosage: UNK
  94. MORPHINE [Concomitant]
     Active Substance: MORPHINE
     Dosage: UNK
     Route: 065
  95. MORPHINE [Concomitant]
     Active Substance: MORPHINE
     Dosage: UNK
     Route: 065
  96. MORPHINE [Concomitant]
     Active Substance: MORPHINE
     Dosage: UNK
  97. ACETAMINOPHEN [Concomitant]
     Active Substance: ACETAMINOPHEN
     Dosage: CYCLE (QCY)
     Dates: start: 20220307, end: 20220704
  98. ACETAMINOPHEN [Concomitant]
     Active Substance: ACETAMINOPHEN
     Dosage: CYCLE (QCY)
     Route: 065
     Dates: start: 20220307, end: 20220704
  99. ACETAMINOPHEN [Concomitant]
     Active Substance: ACETAMINOPHEN
     Dosage: CYCLE (QCY)
     Route: 065
     Dates: start: 20220307, end: 20220704
  100. ACETAMINOPHEN [Concomitant]
     Active Substance: ACETAMINOPHEN
     Dosage: CYCLE (QCY)
     Dates: start: 20220307, end: 20220704
  101. LEVOCETIRIZINE HYDROCHLORIDE [Concomitant]
     Active Substance: LEVOCETIRIZINE HYDROCHLORIDE
     Dosage: CYCLE (QCY)
     Dates: start: 20220308, end: 20220704
  102. LEVOCETIRIZINE HYDROCHLORIDE [Concomitant]
     Active Substance: LEVOCETIRIZINE HYDROCHLORIDE
     Dosage: CYCLE (QCY)
     Route: 065
     Dates: start: 20220308, end: 20220704
  103. LEVOCETIRIZINE HYDROCHLORIDE [Concomitant]
     Active Substance: LEVOCETIRIZINE HYDROCHLORIDE
     Dosage: CYCLE (QCY)
     Route: 065
     Dates: start: 20220308, end: 20220704
  104. LEVOCETIRIZINE HYDROCHLORIDE [Concomitant]
     Active Substance: LEVOCETIRIZINE HYDROCHLORIDE
     Dosage: CYCLE (QCY)
     Dates: start: 20220308, end: 20220704
  105. LANSOPRAZOLE [Concomitant]
     Active Substance: LANSOPRAZOLE
     Dosage: CYCLE (QCY)
     Dates: start: 20220307, end: 20220704
  106. LANSOPRAZOLE [Concomitant]
     Active Substance: LANSOPRAZOLE
     Dosage: CYCLE (QCY)
     Route: 065
     Dates: start: 20220307, end: 20220704
  107. LANSOPRAZOLE [Concomitant]
     Active Substance: LANSOPRAZOLE
     Dosage: CYCLE (QCY)
     Route: 065
     Dates: start: 20220307, end: 20220704
  108. LANSOPRAZOLE [Concomitant]
     Active Substance: LANSOPRAZOLE
     Dosage: CYCLE (QCY)
     Dates: start: 20220307, end: 20220704
  109. CIMETIDINE [Concomitant]
     Active Substance: CIMETIDINE
     Dosage: CYCLE (QCY)
     Dates: start: 20220307, end: 20220704
  110. CIMETIDINE [Concomitant]
     Active Substance: CIMETIDINE
     Dosage: CYCLE (QCY)
     Route: 065
     Dates: start: 20220307, end: 20220704
  111. CIMETIDINE [Concomitant]
     Active Substance: CIMETIDINE
     Dosage: CYCLE (QCY)
     Route: 065
     Dates: start: 20220307, end: 20220704
  112. CIMETIDINE [Concomitant]
     Active Substance: CIMETIDINE
     Dosage: CYCLE (QCY)
     Dates: start: 20220307, end: 20220704

REACTIONS (3)
  - Disease progression [Fatal]
  - General physical health deterioration [Fatal]
  - Oral fungal infection [Not Recovered/Not Resolved]

NARRATIVE: CASE EVENT DATE: 20220718
